FAERS Safety Report 17051330 (Version 2)
Quarter: 2019Q4

REPORT INFORMATION
  Report Type: Spontaneous
  Country: DE (occurrence: DE)
  Receive Date: 20191120
  Receipt Date: 20191204
  Transmission Date: 20200122
  Serious: Yes (Life-Threatening, Hospitalization, Other)
  Sender: FDA-Public Use
  Company Number: DE-ALKEM LABORATORIES LIMITED-DE-ALKEM-2019-09721

PATIENT
  Age: 67 Year
  Sex: Female
  Weight: 110 kg

DRUGS (6)
  1. PROPOFOL. [Concomitant]
     Active Substance: PROPOFOL
     Indication: INDUCTION OF ANAESTHESIA
     Dosage: 330 MILLIGRAM ONE TOTAL
     Route: 040
     Dates: start: 20190826
  2. CLINDAMYCIN. [Suspect]
     Active Substance: CLINDAMYCIN
     Indication: PRODUCT USED FOR UNKNOWN INDICATION
     Dosage: 600 MG, ONE TOTAL
     Route: 042
     Dates: start: 20190826
  3. REMIFENTANIL [Concomitant]
     Active Substance: REMIFENTANIL
     Indication: ANAESTHESIA PROCEDURE
     Dosage: 480 MICROGRAM ONE PER HOUR
     Route: 040
     Dates: start: 20190826
  4. SUFENTANIL [Concomitant]
     Active Substance: SUFENTANIL
     Indication: ANAESTHESIA PROCEDURE
     Dosage: 85 MICROGRAM
     Route: 040
     Dates: start: 20190826
  5. CEFUROXIME AXETIL. [Suspect]
     Active Substance: CEFUROXIME AXETIL
     Indication: PRODUCT USED FOR UNKNOWN INDICATION
     Dosage: 1.5 G ONE TOTAL
     Route: 042
     Dates: start: 20190826
  6. ROBINUL [Concomitant]
     Active Substance: GLYCOPYRROLATE
     Indication: BRADYCARDIA
     Dosage: 0.2 MILLIGRAM ONE TOTAL
     Route: 040
     Dates: start: 20190826

REACTIONS (4)
  - Anaphylactic reaction [Unknown]
  - Flushing [Recovered/Resolved]
  - Cardiovascular disorder [Recovered/Resolved]
  - Shock [Recovered/Resolved]

NARRATIVE: CASE EVENT DATE: 20190826
